FAERS Safety Report 8180429-9 (Version None)
Quarter: 2012Q1

REPORT INFORMATION
  Report Type: 
  Country: None (occurrence: None)
  Receive Date: 20120302
  Receipt Date: 20120228
  Transmission Date: 20120608
  Serious: Yes (Hospitalization, Congenital Anomaly, Other)
  Sender: FDA-Public Use
  Company Number: US-PFIZER INC-2011177211

PATIENT
  Sex: Male
  Weight: 3.5 kg

DRUGS (10)
  1. INSULIN [Concomitant]
     Dosage: UNK
     Route: 064
  2. SYNTHROID [Concomitant]
     Dosage: 0.275 MG, 1X/DAY
     Route: 064
  3. ZOLOFT [Suspect]
     Indication: DEPRESSION
  4. DIOVAN [Concomitant]
     Dosage: 80 MG, 1X/DAY
     Route: 064
  5. ZOLOFT [Suspect]
     Indication: ANXIETY
     Dosage: 100 MG, 1X/DAY
     Route: 064
     Dates: start: 20000217
  6. METHYLDOPA [Concomitant]
     Dosage: 500 MG, 3X/DAY
     Route: 064
  7. MULTI-VITAMINS [Concomitant]
     Dosage: 1 TABLET DAILY
     Route: 064
  8. ATENOLOL [Concomitant]
     Dosage: 50 MG, 1X/DAY
     Route: 064
  9. GLUCOPHAGE [Concomitant]
     Dosage: 500 MG, 2X/DAY
     Route: 064
  10. ZOLOFT [Suspect]
     Indication: AFFECTIVE DISORDER

REACTIONS (21)
  - AORTIC VALVE ATRESIA [None]
  - VENTRICULAR SEPTAL DEFECT [None]
  - HYPOMAGNESAEMIA [None]
  - DEVELOPMENTAL DELAY [None]
  - INFANTILE APNOEIC ATTACK [None]
  - FOETAL EXPOSURE DURING PREGNANCY [None]
  - SEPSIS NEONATAL [None]
  - ATRIAL FIBRILLATION [None]
  - SHOCK [None]
  - CARDIOMEGALY [None]
  - RIGHT ATRIAL DILATATION [None]
  - TRICUSPID VALVE INCOMPETENCE [None]
  - ILIAC VEIN OCCLUSION [None]
  - HYPOPLASTIC LEFT HEART SYNDROME [None]
  - RIGHT VENTRICULAR HYPERTROPHY [None]
  - HYPOCALCAEMIA [None]
  - SPEECH DISORDER [None]
  - MITRAL VALVE STENOSIS [None]
  - AORTIC STENOSIS [None]
  - ATRIAL SEPTAL DEFECT [None]
  - LEFT VENTRICULAR HYPERTROPHY [None]
